FAERS Safety Report 7455086-7 (Version None)
Quarter: 2011Q2

REPORT INFORMATION
  Report Type: 
  Country: None (occurrence: None)
  Receive Date: 20110503
  Receipt Date: 20110321
  Transmission Date: 20111010
  Serious: Yes (Hospitalization, Other)
  Sender: FDA-Public Use
  Company Number: US-BAYER-2010-002162

PATIENT
  Age: 33 Year
  Sex: Female
  Weight: 79 kg

DRUGS (9)
  1. DICLOFENAC [Concomitant]
  2. PREDNISONE [Concomitant]
  3. PROPOXYPHENE HYDROCHLORIDE [Concomitant]
  4. CYCLOBENZAPRINE [Concomitant]
  5. MELOXICAM [Concomitant]
  6. YASMIN [Suspect]
     Indication: PRODUCT USED FOR UNKNOWN INDICATION
  7. YAZ [Suspect]
     Indication: PRODUCT USED FOR UNKNOWN INDICATION
  8. OCELLA [Suspect]
  9. TRAMADOL [Concomitant]

REACTIONS (2)
  - GALLBLADDER DISORDER [None]
  - CHOLECYSTITIS CHRONIC [None]
